FAERS Safety Report 7234815-1 (Version None)
Quarter: 2011Q1

REPORT INFORMATION
  Report Type: 
  Country: None (occurrence: None)
  Receive Date: 20110120
  Receipt Date: 20110113
  Transmission Date: 20110831
  Serious: Yes (Hospitalization, Other)
  Sender: FDA-Public Use
  Company Number: US-ASTRAZENECA-2005UW13288

PATIENT
  Age: 182 Month
  Sex: Male
  Weight: 80.1 kg

DRUGS (22)
  1. ALLEGRA [Concomitant]
     Route: 065
  2. ESKALITH [Concomitant]
     Dates: start: 19990728
  3. SEROQUEL [Suspect]
     Dosage: HALF TAB AM AND PM AND ONE HS
     Route: 048
     Dates: start: 19990728
  4. PAXIL [Concomitant]
     Route: 065
     Dates: start: 19990728
  5. DEPAKOTE [Concomitant]
     Route: 065
     Dates: start: 19990728
  6. REMERON [Concomitant]
     Route: 065
  7. COLACE [Concomitant]
     Route: 065
  8. LANTUS [Concomitant]
     Dosage: 29 TO 30 UNITS
     Route: 065
  9. SEROQUEL [Suspect]
     Indication: BIPOLAR I DISORDER
     Route: 048
     Dates: start: 19990101, end: 20000101
  10. LEXAPRO [Concomitant]
     Dosage: 5 TO 10 MG
     Route: 048
     Dates: start: 20030623
  11. NOVALIN HUMAN INSULIN [Concomitant]
     Dosage: 1000
     Route: 065
  12. AMOXICILLIN [Concomitant]
     Dosage: 125 MG TO 875 MG
     Route: 048
  13. RILALIN [Concomitant]
     Route: 065
  14. HUMALOG [Concomitant]
     Route: 065
  15. SEROQUEL [Suspect]
     Dosage: HALF TAB AM AND PM AND ONE HS
     Route: 048
     Dates: start: 19990728
  16. SEROQUEL [Suspect]
     Dosage: 50 MG TO 200 MG
     Route: 048
     Dates: start: 19991203
  17. CELEXA [Concomitant]
     Route: 065
  18. HEPARIN [Concomitant]
     Dosage: 10 UNITS/ML
     Route: 065
  19. SEROQUEL [Suspect]
     Dosage: 50 MG TO 200 MG
     Route: 048
     Dates: start: 19991203
  20. ALBUTEROL [Concomitant]
     Route: 065
  21. SEROQUEL [Suspect]
     Route: 048
     Dates: start: 19990101, end: 20000101
  22. LITHIUM CARBONATE [Concomitant]
     Route: 065

REACTIONS (9)
  - TYPE 1 DIABETES MELLITUS [None]
  - CONDUCT DISORDER [None]
  - PANIC DISORDER [None]
  - DIABETIC RETINOPATHY [None]
  - BIPOLAR DISORDER [None]
  - SUBSTANCE ABUSE [None]
  - DRUG ABUSE [None]
  - DIABETIC KETOACIDOSIS [None]
  - DIABETES MELLITUS [None]
